FAERS Safety Report 6245954-6 (Version None)
Quarter: 2009Q2

REPORT INFORMATION
  Report Type: 
  Country: None (occurrence: None)
  Receive Date: 20090626
  Receipt Date: 20080829
  Transmission Date: 20091009
  Serious: No
  Sender: FDA-Public Use
  Company Number: A0743558A

PATIENT
  Age: 63 Year
  Sex: Female
  Weight: 71.8 kg

DRUGS (1)
  1. IMITREX [Suspect]
     Indication: MIGRAINE
     Dosage: 50MG AS REQUIRED
     Route: 048
     Dates: start: 20080101

REACTIONS (5)
  - CHEST DISCOMFORT [None]
  - CHEST PAIN [None]
  - HYPERHIDROSIS [None]
  - MUSCLE SPASMS [None]
  - MUSCLE TIGHTNESS [None]
